FAERS Safety Report 8927140 (Version 1)
Quarter: 2012Q4

REPORT INFORMATION
  Report Type: 
  Country: GB (occurrence: GB)
  Receive Date: 20121127
  Receipt Date: 20121127
  Transmission Date: 20130627
  Serious: Yes (Life-Threatening)
  Sender: FDA-Public Use
  Company Number: GB-ASTRAZENECA-2012SE89112

PATIENT
  Age: 78 Year
  Sex: Male
  Weight: 85 kg

DRUGS (4)
  1. LIDOCAINE HYDROCHLORIDE [Suspect]
     Indication: GOUT
     Route: 014
     Dates: start: 20121107, end: 20121107
  2. CHLORHEXIDINE GLUCONATE [Suspect]
     Route: 003
     Dates: start: 20121107, end: 20121107
  3. DEPO-MEDRONE [Suspect]
     Indication: GOUT
     Route: 014
     Dates: start: 20121107, end: 20121107
  4. CHIROCAINE [Suspect]
     Indication: GOUT
     Route: 014
     Dates: start: 20121107, end: 20121107

REACTIONS (5)
  - Rhinitis [Recovered/Resolved]
  - Sneezing [Recovered/Resolved]
  - Hypersensitivity [Recovered/Resolved]
  - Hypotension [Recovered/Resolved]
  - Syncope [Recovered/Resolved]
